FAERS Safety Report 6412973-6 (Version None)
Quarter: 2009Q4

REPORT INFORMATION
  Report Type: 
  Country: None (occurrence: None)
  Receive Date: 20091023
  Receipt Date: 20091016
  Transmission Date: 20100525
  Serious: Yes (Other)
  Sender: FDA-Public Use
  Company Number: PHHY2009BR45375

PATIENT
  Age: 48 Year
  Sex: Male

DRUGS (5)
  1. EXELON [Suspect]
     Dosage: 6 MG DAILY
     Route: 048
     Dates: start: 20091016
  2. NALTREXONE HYDROCHLORIDE [Suspect]
     Dosage: 100 MG DAILY
     Route: 048
     Dates: start: 20091016
  3. ZOLPIDEM TARTRATE [Suspect]
     Dosage: 10 MG DAILY
     Route: 048
  4. ALPRAZOLAM [Suspect]
     Dosage: 2 MG DAILY
     Route: 048
  5. ALCOHOL [Suspect]

REACTIONS (3)
  - HYPOREFLEXIA [None]
  - MIOSIS [None]
  - SOMNOLENCE [None]
